FAERS Safety Report 9142645 (Version 1)
Quarter: 2013Q1

REPORT INFORMATION
  Report Type: Spontaneous
  Country: MX (occurrence: MX)
  Receive Date: 20130306
  Receipt Date: 20130306
  Transmission Date: 20140127
  Serious: Yes (Hospitalization, Other)
  Sender: FDA-Public Use
  Company Number: PHHY2013MX021678

PATIENT
  Age: 72 Year
  Sex: Female

DRUGS (2)
  1. DIOVAN [Suspect]
     Indication: HYPERTENSION
     Dosage: 320 MG, DAILY
     Route: 048
     Dates: start: 201205
  2. ASPIRINA PROTECT [Concomitant]
     Indication: CARDIAC DISORDER
     Dosage: 1 DF, DAILY

REACTIONS (1)
  - Amnesia [Not Recovered/Not Resolved]
